FAERS Safety Report 4528042-6 (Version None)
Quarter: 2004Q4

REPORT INFORMATION
  Report Type: 
  Country: None (occurrence: None)
  Receive Date: 20041123
  Receipt Date: 20040423
  Transmission Date: 20050328
  Serious: Yes (Other)
  Sender: FDA-Public Use
  Company Number: 2004028348

PATIENT
  Age: 55 Year
  Sex: Female

DRUGS (10)
  1. LIPITOR [Suspect]
     Indication: CORONARY ARTERY DISEASE
     Dosage: 10 MG (DAILY), ORAL
     Route: 048
     Dates: start: 20010301, end: 20031013
  2. NIFEDIPINE [Concomitant]
  3. METOPROLOL TARTRATE [Concomitant]
  4. LOSARTAN POTASSIUM [Concomitant]
  5. HYDROCHLOROTHIAZIDE [Concomitant]
  6. CELECOXIB (CELECOXIB) [Concomitant]
  7. PAROXETINE HCL [Concomitant]
  8. OMEPRAZOLE [Concomitant]
  9. CONJUGATED ESTROGENS [Concomitant]
  10. ASPIRIN [Concomitant]

REACTIONS (4)
  - ASPARTATE AMINOTRANSFERASE INCREASED [None]
  - BLOOD CREATINE PHOSPHOKINASE INCREASED [None]
  - CHEST PAIN [None]
  - LOW DENSITY LIPOPROTEIN ABNORMAL [None]
